FAERS Safety Report 10792984 (Version 10)
Quarter: 2016Q2

REPORT INFORMATION
  Report Type: Spontaneous
  Country: US (occurrence: US)
  Receive Date: 20150213
  Receipt Date: 20160617
  Transmission Date: 20160815
  Serious: Yes (Hospitalization, Congenital Anomaly, Other)
  Sender: FDA-Public Use
  Company Number: US-APOTEX-2015AP006405

PATIENT
  Age: 9 Day
  Sex: Male

DRUGS (1)
  1. PAXIL [Suspect]
     Active Substance: PAROXETINE HYDROCHLORIDE
     Indication: DEPRESSION
     Dosage: 20 MG, QD
     Route: 064
     Dates: start: 1996, end: 1997

REACTIONS (33)
  - Pulmonary oedema [Unknown]
  - Patent ductus arteriosus [Unknown]
  - Renal aplasia [Unknown]
  - Cardiomegaly [Unknown]
  - Aortic stenosis [Unknown]
  - Rib deformity [Unknown]
  - Tricuspid valve disease [Unknown]
  - Coarctation of the aorta [Unknown]
  - Cardiac murmur [Unknown]
  - Mitral valve stenosis [Unknown]
  - Atrioventricular block [Unknown]
  - Amnesia [Unknown]
  - Pleural effusion [Unknown]
  - Congenital renal disorder [Unknown]
  - Ventricular septal defect [Unknown]
  - Shone complex [Unknown]
  - Aortic valve incompetence [Unknown]
  - Hypertrophic cardiomyopathy [Unknown]
  - Developmental delay [Unknown]
  - Congenital cardiovascular anomaly [Unknown]
  - Atrial septal defect [Unknown]
  - Back pain [Unknown]
  - Attention deficit/hyperactivity disorder [Unknown]
  - Congenital pulmonary valve disorder [Unknown]
  - Ventricular hypertrophy [Unknown]
  - Gastrooesophageal reflux disease [Unknown]
  - Hemivertebra [Unknown]
  - Congenital musculoskeletal anomaly [Unknown]
  - Congenital scoliosis [Unknown]
  - Hiatus hernia [Unknown]
  - Cognitive disorder [Unknown]
  - Foetal exposure during pregnancy [Unknown]
  - Bundle branch block right [Unknown]

NARRATIVE: CASE EVENT DATE: 19970330
